FAERS Safety Report 20209037 (Version 2)
Quarter: 2022Q1

REPORT INFORMATION
  Report Type: Report from Study
  Country: US (occurrence: US)
  Receive Date: 20211220
  Receipt Date: 20220119
  Transmission Date: 20220423
  Serious: Yes (Hospitalization)
  Sender: FDA-Public Use
  Company Number: US-PFIZER INC-202101761427

PATIENT
  Age: 77 Year
  Sex: Male
  Weight: 82.7 kg

DRUGS (3)
  1. CRIZOTINIB [Suspect]
     Active Substance: CRIZOTINIB
     Dosage: TWICE DAILY (BID), CYCLE: 28 DAYS
     Route: 048
     Dates: start: 20160726, end: 20161024
  2. CRIZOTINIB [Suspect]
     Active Substance: CRIZOTINIB
     Dosage: TOTAL DOSE ADMINISTERED THIS COURSE (DOSE): 10400 MG
     Route: 048
     Dates: start: 20160927
  3. CRIZOTINIB [Suspect]
     Active Substance: CRIZOTINIB
     Dosage: 200 MG
     Route: 048

REACTIONS (5)
  - Atrial fibrillation [Unknown]
  - Syncope [Recovered/Resolved]
  - Dizziness [Recovered/Resolved]
  - Hypotension [Unknown]
  - Urinary tract infection [Unknown]

NARRATIVE: CASE EVENT DATE: 20161025
